FAERS Safety Report 7460964-9 (Version None)
Quarter: 2011Q2

REPORT INFORMATION
  Report Type: 
  Country: None (occurrence: None)
  Receive Date: 20110505
  Receipt Date: 20110504
  Transmission Date: 20111010
  Serious: Yes (Hospitalization)
  Sender: FDA-Public Use
  Company Number: AU-ABBOTT-11P-008-0723240-00

PATIENT
  Age: 60 Year
  Sex: Male

DRUGS (7)
  1. ZIDOVUDINE [Suspect]
     Indication: HIV INFECTION
  2. LAMIVUDINE [Suspect]
  3. EFAVIRENZ [Suspect]
     Indication: HIV INFECTION
  4. EFAVIRENZ [Suspect]
  5. TENOFOVIR DISOPROXIL FUMARATE [Suspect]
     Indication: HIV INFECTION
  6. LOPINAVIR AND RITONAVIR [Suspect]
     Indication: HIV INFECTION
  7. LAMIVUDINE [Suspect]
     Indication: HIV INFECTION

REACTIONS (4)
  - IMMUNE RECONSTITUTION SYNDROME [None]
  - LEISHMANIASIS [None]
  - DIARRHOEA [None]
  - NAUSEA [None]
